FAERS Safety Report 9908595 (Version 1)
Quarter: 2014Q1

REPORT INFORMATION
  Report Type: Spontaneous
  Country: US (occurrence: None)
  Receive Date: 20140212
  Receipt Date: 20140212
  Transmission Date: 20141002
  Serious: Yes (Hospitalization)
  Sender: FDA-Public Use
  Company Number: None

PATIENT
  Age: 64 Year
  Sex: Female
  Weight: 89.1 kg

DRUGS (2)
  1. CARBOPLATIN [Suspect]
     Dates: end: 20140210
  2. PACLITAXEL (TAXOL) [Suspect]
     Dates: end: 20140210

REACTIONS (2)
  - Pyrexia [None]
  - Rash [None]
